FAERS Safety Report 16119793 (Version 1)
Quarter: 2019Q1

REPORT INFORMATION
  Report Type: Spontaneous
  Country: US (occurrence: US)
  Receive Date: 20190326
  Receipt Date: 20190326
  Transmission Date: 20190418
  Serious: No
  Sender: FDA-Public Use
  Company Number: US-BAUSCH-BL-2019-008343

PATIENT
  Age: 73 Year
  Sex: Female
  Weight: 56.75 kg

DRUGS (2)
  1. MULTIVITAMINS [Concomitant]
     Active Substance: VITAMINS
     Indication: PRODUCT USED FOR UNKNOWN INDICATION
  2. ALAWAY [Suspect]
     Active Substance: KETOTIFEN FUMARATE
     Indication: MULTIPLE ALLERGIES
     Dosage: ONE TO TWO TIMES DAILY
     Route: 047
     Dates: start: 2019, end: 20190313

REACTIONS (2)
  - Erythema [Recovered/Resolved]
  - Eye pain [Recovered/Resolved]

NARRATIVE: CASE EVENT DATE: 20190311
